FAERS Safety Report 11430769 (Version 1)
Quarter: 2015Q3

REPORT INFORMATION
  Report Type: Spontaneous
  Country: US (occurrence: US)
  Receive Date: 20150828
  Receipt Date: 20150828
  Transmission Date: 20151125
  Serious: No
  Sender: FDA-Public Use
  Company Number: US-ROCHE-1089655

PATIENT
  Sex: Male
  Weight: 86.26 kg

DRUGS (3)
  1. RIBAVIRIN. [Suspect]
     Active Substance: RIBAVIRIN
     Indication: CHRONIC HEPATITIS C
     Dosage: DIVIDED DOSES, 600/600
     Route: 048
     Dates: start: 20120504, end: 20121109
  2. TELAPREVIR [Suspect]
     Active Substance: TELAPREVIR
     Indication: CHRONIC HEPATITIS C
     Route: 065
     Dates: start: 20120504, end: 20121109
  3. PEGASYS [Suspect]
     Active Substance: PEGINTERFERON ALFA-2A
     Indication: CHRONIC HEPATITIS C
     Route: 058
     Dates: start: 20120504, end: 20121109

REACTIONS (21)
  - Dry mouth [Unknown]
  - Arthralgia [Unknown]
  - Night sweats [Unknown]
  - Gastritis [Unknown]
  - Dry skin [Unknown]
  - Pain of skin [Unknown]
  - Pruritus [Unknown]
  - Cough [Unknown]
  - Depression [Unknown]
  - White blood cell count decreased [Unknown]
  - Decreased activity [Unknown]
  - Red blood cell count decreased [Unknown]
  - Alopecia [Not Recovered/Not Resolved]
  - Irritability [Unknown]
  - Alopecia [Unknown]
  - Abdominal discomfort [Unknown]
  - Platelet count decreased [Unknown]
  - Nervousness [Unknown]
  - Weight decreased [Unknown]
  - Dysgeusia [Unknown]
  - Pain in extremity [Unknown]
